FAERS Safety Report 6882605-1 (Version None)
Quarter: 2010Q3

REPORT INFORMATION
  Report Type: 
  Country: None (occurrence: None)
  Receive Date: 20100701
  Receipt Date: 20090730
  Transmission Date: 20110219
  Serious: Yes (Hospitalization)
  Sender: FDA-Public Use
  Company Number: 09-ADE-SE-0019-ACT

PATIENT
  Sex: Female
  Weight: 13 kg

DRUGS (7)
  1. H P ACTHAR [Suspect]
     Indication: INFANTILE SPASMS
     Dates: start: 20050331, end: 20050414
  2. KLONOPIN [Concomitant]
  3. ZONISAMIDE [Concomitant]
  4. PREDNISONE TAB [Concomitant]
  5. VITAMIN B6 [Concomitant]
  6. MELATONIN [Concomitant]
  7. VIGABATRIN [Concomitant]

REACTIONS (1)
  - HERPES ZOSTER [None]
